FAERS Safety Report 8131938-X (Version None)
Quarter: 2012Q1

REPORT INFORMATION
  Report Type: 
  Country: None (occurrence: None)
  Receive Date: 20120208
  Receipt Date: 20120131
  Transmission Date: 20120608
  Serious: Yes (Death, Hospitalization)
  Sender: FDA-Public Use
  Company Number: AUR-APL-2012-00750

PATIENT
  Age: 11 Month
  Sex: Male
  Weight: 10.88 kg

DRUGS (2)
  1. AMLODIPINE [Suspect]
     Indication: PRODUCT USED FOR UNKNOWN INDICATION
     Dosage: ORAL
     Route: 048
  2. BENAZEPRIL HYDROCHLORIDE [Suspect]
     Indication: PRODUCT USED FOR UNKNOWN INDICATION
     Dosage: ORAL
     Route: 048

REACTIONS (11)
  - VOMITING [None]
  - ACCIDENTAL DRUG INTAKE BY CHILD [None]
  - RESPIRATORY RATE INCREASED [None]
  - BLOOD PRESSURE IMMEASURABLE [None]
  - BRADYCARDIA [None]
  - CARDIAC ARREST [None]
  - BLOOD GLUCOSE INCREASED [None]
  - UNRESPONSIVE TO STIMULI [None]
  - HEART RATE INCREASED [None]
  - PULMONARY OEDEMA [None]
  - BLOOD PRESSURE DECREASED [None]
